FAERS Safety Report 5099249-7 (Version None)
Quarter: 2006Q3

REPORT INFORMATION
  Report Type: 
  Country: None (occurrence: None)
  Receive Date: 20060731
  Receipt Date: 20060530
  Transmission Date: 20061208
  Serious: Yes (Other)
  Sender: FDA-Public Use
  Company Number: US-2006-013425

PATIENT
  Sex: Female

DRUGS (1)
  1. MAGNEVIST [Suspect]
     Dosage: 3 ML, 1 DOSE
     Dates: start: 20060417, end: 20060417

REACTIONS (1)
  - CONVULSION [None]
